FAERS Safety Report 6092957-0 (Version None)
Quarter: 2009Q1

REPORT INFORMATION
  Report Type: 
  Country: None (occurrence: None)
  Receive Date: 20090225
  Receipt Date: 20090223
  Transmission Date: 20090719
  Serious: Yes (Other)
  Sender: FDA-Public Use
  Company Number: IE-ALLERGAN-0902343US

PATIENT

DRUGS (2)
  1. LIQUIFILM TEARS [Suspect]
     Indication: DRUG USE FOR UNKNOWN INDICATION
     Dosage: UNK, UNKNOWN
     Route: 047
  2. LIQUIFILM TEARS [Suspect]

REACTIONS (1)
  - INFECTION [None]
